FAERS Safety Report 10673743 (Version 1)
Quarter: 2014Q4

REPORT INFORMATION
  Report Type: Spontaneous
  Country: US (occurrence: None)
  Receive Date: 20141223
  Receipt Date: 20141223
  Transmission Date: 20150529
  Serious: No
  Sender: FDA-Public Use
  Company Number: None

PATIENT
  Age: 81 Year
  Sex: Female
  Weight: 78.93 kg

DRUGS (17)
  1. EYE DROPS-LATANPROST [Concomitant]
  2. ESTROGEN [Concomitant]
     Active Substance: ESTRONE\SUS SCROFA OVARY
  3. TUMS [Concomitant]
     Active Substance: CALCIUM CARBONATE
  4. HYOSCYAMINE [Concomitant]
     Active Substance: HYOSCYAMINE
  5. ALPHAGAN P [Concomitant]
     Active Substance: BRIMONIDINE TARTRATE
  6. OMEPAZOLE [Concomitant]
  7. NYSTATIN ORAL SUSPENSION [Concomitant]
  8. MUCUS RELIEF [Concomitant]
     Active Substance: GUAIFENESIN
  9. D3 [Concomitant]
     Active Substance: 25-HYDROXYCHOLECALCIFEROL, 5-TRANS-
  10. SYNTHROID [Concomitant]
     Active Substance: LEVOTHYROXINE SODIUM
  11. TYLENOL [Concomitant]
     Active Substance: ACETAMINOPHEN
  12. AMORO ELIPTCO [Concomitant]
  13. SENNA S [Concomitant]
     Active Substance: DOCUSATE SODIUM\SENNA LEAF
  14. FLOVENT HFA [Suspect]
     Active Substance: FLUTICASONE PROPIONATE
     Indication: CHRONIC OBSTRUCTIVE PULMONARY DISEASE
     Dosage: 2 PUFFS 2X 2 TIMES BY MOUTH
     Route: 048
     Dates: start: 20140502, end: 20141205
  15. TRAZODONE [Concomitant]
     Active Substance: TRAZODONE HYDROCHLORIDE
  16. IBUPROPHEN [Concomitant]
  17. GAS RELIEF [Concomitant]
     Active Substance: DIMETHICONE

REACTIONS (3)
  - Pharyngitis [None]
  - Candida infection [None]
  - Sinusitis [None]

NARRATIVE: CASE EVENT DATE: 20141103
